FAERS Safety Report 19389657 (Version 1)
Quarter: 2021Q2

REPORT INFORMATION
  Report Type: Spontaneous
  Country: US (occurrence: US)
  Receive Date: 20210607
  Receipt Date: 20210607
  Transmission Date: 20210717
  Serious: Yes (Other)
  Sender: FDA-Public Use
  Company Number: None

PATIENT
  Age: 33 Year
  Sex: Female
  Weight: 65.25 kg

DRUGS (1)
  1. GADOBUTROL .1ML/7.5ML [Suspect]
     Active Substance: GADOBUTROL
     Indication: MAGNETIC RESONANCE IMAGING HEAD
     Route: 042
     Dates: start: 20191024

REACTIONS (7)
  - Paraesthesia [None]
  - Feeling of body temperature change [None]
  - Visual impairment [None]
  - Injection site pain [None]
  - Contrast media deposition [None]
  - Pain [None]
  - Swelling [None]

NARRATIVE: CASE EVENT DATE: 20191024
